FAERS Safety Report 8549297-7 (Version None)
Quarter: 2012Q3

REPORT INFORMATION
  Report Type: 
  Country: None (occurrence: None)
  Receive Date: 20120720
  Receipt Date: 20120720
  Transmission Date: 20120928
  Serious: Yes (Other)
  Sender: FDA-Public Use
  Company Number: None

PATIENT
  Age: 53 Year
  Sex: Female
  Weight: 90.7194 kg

DRUGS (1)
  1. CIPROFLOXACIN [Suspect]
     Indication: CYSTITIS
     Dosage: 1-2 X A DAY TWICE A DAY PO
     Route: 048
     Dates: start: 20120713, end: 20120715

REACTIONS (1)
  - POSTMENOPAUSAL HAEMORRHAGE [None]
